FAERS Safety Report 14661544 (Version 2)
Quarter: 2018Q2

REPORT INFORMATION
  Report Type: Spontaneous
  Country: US (occurrence: US)
  Receive Date: 20180320
  Receipt Date: 20180530
  Transmission Date: 20180711
  Serious: No
  Sender: FDA-Public Use
  Company Number: US-ACTELION-A-NJ2018-169292

PATIENT
  Age: 48 Year
  Sex: Male
  Weight: 67.12 kg

DRUGS (1)
  1. OPSUMIT [Suspect]
     Active Substance: MACITENTAN
     Indication: PULMONARY HYPERTENSION
     Dosage: 10 M, QD
     Route: 048

REACTIONS (3)
  - Accidental overdose [Unknown]
  - No adverse event [Unknown]
  - Nervous system disorder [Unknown]
